FAERS Safety Report 7108368-2 (Version None)
Quarter: 2010Q4

REPORT INFORMATION
  Report Type: 
  Country: None (occurrence: None)
  Receive Date: 20101115
  Receipt Date: 20101115
  Transmission Date: 20110411
  Serious: No
  Sender: FDA-Public Use
  Company Number: None

PATIENT
  Sex: Female
  Weight: 58.9676 kg

DRUGS (1)
  1. DOXYCYCLINE HYCLATE [Suspect]
     Indication: ANIMAL SCRATCH
     Dosage: 100 MG TWICE DAILY ORAL
     Route: 048
     Dates: start: 20090304

REACTIONS (12)
  - BLISTER [None]
  - NAIL DISCOLOURATION [None]
  - NAIL DISORDER [None]
  - NAIL GROWTH ABNORMAL [None]
  - ONYCHOCLASIS [None]
  - ONYCHOMADESIS [None]
  - PAIN [None]
  - PHOTOPHOBIA [None]
  - PRURITUS [None]
  - SKIN IRRITATION [None]
  - SUNBURN [None]
  - TEMPERATURE INTOLERANCE [None]
